FAERS Safety Report 6634538-3 (Version None)
Quarter: 2010Q1

REPORT INFORMATION
  Report Type: 
  Country: None (occurrence: None)
  Receive Date: 20100225
  Receipt Date: 20090102
  Transmission Date: 20100710
  Serious: Yes (Hospitalization)
  Sender: FDA-Public Use
  Company Number: 586178

PATIENT
  Age: 22 Year
  Sex: Male
  Weight: 87.5 kg

DRUGS (4)
  1. ACCUTANE [Suspect]
     Indication: ACNE
     Dates: start: 20000101
  2. AMNESTEEM [Suspect]
     Indication: ACNE
     Dosage: 40 MG 1 PER DAY ORAL
     Route: 048
     Dates: start: 20051101, end: 20060601
  3. TAZORAC [Concomitant]
  4. ADVIL LIQUI-GELS [Concomitant]

REACTIONS (5)
  - ANXIETY [None]
  - COLITIS [None]
  - DEPRESSED MOOD [None]
  - INFLAMMATORY BOWEL DISEASE [None]
  - STOMATITIS [None]
